FAERS Safety Report 4744767-1 (Version None)
Quarter: 2005Q3

REPORT INFORMATION
  Report Type: 
  Country: None (occurrence: None)
  Receive Date: 20050815
  Receipt Date: 20050801
  Transmission Date: 20060218
  Serious: Yes (Hospitalization)
  Sender: FDA-Public Use
  Company Number: 2005AP04283

PATIENT
  Age: 1398 Day
  Sex: Male
  Weight: 15.7 kg

DRUGS (4)
  1. PULMICORT [Suspect]
     Indication: ASTHMA
     Route: 055
     Dates: start: 20031212
  2. WHITE PETROLATUM [Concomitant]
     Indication: DERMATITIS ATOPIC
     Route: 061
     Dates: start: 20050617
  3. ALMETA [Concomitant]
     Indication: DERMATITIS ATOPIC
     Route: 061
     Dates: start: 20050617
  4. ZITHROMAC [Concomitant]
     Indication: UPPER RESPIRATORY TRACT INFECTION
     Route: 048
     Dates: start: 20050617, end: 20050720

REACTIONS (1)
  - PAROTITIS [None]
